FAERS Safety Report 14551516 (Version 1)
Quarter: 2018Q1

REPORT INFORMATION
  Report Type: Spontaneous
  Country: US (occurrence: US)
  Receive Date: 20180220
  Receipt Date: 20180220
  Transmission Date: 20180509
  Serious: No
  Sender: FDA-Public Use
  Company Number: US-IPSEN BIOPHARMACEUTICALS, INC.-2017-05418

PATIENT
  Age: 44 Year
  Sex: Female

DRUGS (1)
  1. DYSPORT [Suspect]
     Active Substance: ABOBOTULINUMTOXINA
     Indication: SKIN WRINKLING
     Dosage: 120 UNITS
     Route: 065
     Dates: start: 20170208, end: 20170208

REACTIONS (5)
  - Acne [Not Recovered/Not Resolved]
  - Injection site discolouration [Recovered/Resolved]
  - Acne pustular [Not Recovered/Not Resolved]
  - Scab [Not Recovered/Not Resolved]
  - Scar [Not Recovered/Not Resolved]

NARRATIVE: CASE EVENT DATE: 201702
